FAERS Safety Report 7037543-0 (Version None)
Quarter: 2010Q4

REPORT INFORMATION
  Report Type: 
  Country: None (occurrence: None)
  Receive Date: 20101011
  Receipt Date: 20100930
  Transmission Date: 20110411
  Serious: Yes (Hospitalization)
  Sender: FDA-Public Use
  Company Number: CA-JNJFOC-20101000965

PATIENT
  Sex: Female
  Weight: 78.3 kg

DRUGS (16)
  1. REMICADE [Suspect]
     Indication: RHEUMATOID ARTHRITIS
     Route: 042
  2. REMICADE [Suspect]
     Route: 042
  3. CALTRATE 600 WITH VITAMIN D [Concomitant]
     Indication: MEDICAL DIET
  4. CLONAZEPAM [Concomitant]
     Indication: SLEEP DISORDER
  5. TRIAMZIDE [Concomitant]
     Indication: BLOOD PRESSURE
  6. ALENDRONATE SODIUM [Concomitant]
     Indication: OSTEOPOROSIS PROPHYLAXIS
  7. FOLIC ACID [Concomitant]
     Indication: PROPHYLAXIS
  8. PANTOLOC [Concomitant]
     Indication: DYSPEPSIA
  9. SYNTHROID [Concomitant]
     Indication: HYPOTHYROIDISM
  10. MTX [Concomitant]
     Indication: RHEUMATOID ARTHRITIS
  11. PLAVIX [Concomitant]
     Indication: PROPHYLAXIS
  12. CRESTOR [Concomitant]
     Indication: BLOOD CHOLESTEROL INCREASED
  13. MEDROL [Concomitant]
     Indication: RHEUMATOID ARTHRITIS
  14. EFFEXOR [Concomitant]
     Indication: DEPRESSION
  15. TYLENOL [Concomitant]
     Indication: PAIN
     Route: 048
  16. SUPRADOL [Concomitant]
     Route: 048

REACTIONS (3)
  - HYPOAESTHESIA [None]
  - PAIN IN EXTREMITY [None]
  - VASCULAR GRAFT [None]
